FAERS Safety Report 21408780 (Version 1)
Quarter: 2022Q4

REPORT INFORMATION
  Report Type: Report from Study
  Country: US (occurrence: US)
  Receive Date: 20221004
  Receipt Date: 20221004
  Transmission Date: 20230113
  Serious: Yes (Other)
  Sender: FDA-Public Use
  Company Number: US-TEVA-2022-US-2079595

PATIENT
  Age: 49 Year
  Sex: Female

DRUGS (3)
  1. CARBOPLATIN [Suspect]
     Active Substance: CARBOPLATIN
     Indication: Ovarian cancer
     Dosage: 5 CYCLES
     Route: 065
  2. RUCAPARIB [Suspect]
     Active Substance: RUCAPARIB
     Indication: Ovarian cancer
     Dosage: 1200 MILLIGRAM DAILY;
     Route: 048
  3. DOXORUBICIN [Suspect]
     Active Substance: DOXORUBICIN
     Indication: Ovarian cancer
     Dosage: 5 CYCLES
     Route: 065

REACTIONS (2)
  - Haematological malignancy [Unknown]
  - Drug ineffective [Unknown]
